FAERS Safety Report 22191713 (Version 1)
Quarter: 2023Q2

REPORT INFORMATION
  Report Type: Report from Study
  Country: GB (occurrence: GB)
  Receive Date: 20230410
  Receipt Date: 20230410
  Transmission Date: 20230721
  Serious: Yes (Hospitalization)
  Sender: FDA-Public Use
  Company Number: GB-ROCHE-3315752

PATIENT
  Age: 52 Year
  Sex: Female
  Weight: 67.4 kg

DRUGS (25)
  1. CARBOPLATIN [Suspect]
     Active Substance: CARBOPLATIN
     Indication: Small cell lung cancer extensive stage
     Dosage: 630 MG
     Route: 065
     Dates: start: 20220616
  2. CARBOPLATIN [Suspect]
     Active Substance: CARBOPLATIN
     Dosage: UNK
     Route: 065
     Dates: start: 20230207
  3. ATEZOLIZUMAB [Suspect]
     Active Substance: ATEZOLIZUMAB
     Indication: Small cell lung cancer extensive stage
     Dosage: DOSE LAST STUDY DRUG ADMIN PRIOR AE AND SAE WAS1200 MGSTART DATE OF MOST RECENT DOSE OF STUDY DRUG
     Route: 041
     Dates: start: 20220616
  4. ETOPOSIDE [Suspect]
     Active Substance: ETOPOSIDE
     Indication: Small cell lung cancer extensive stage
     Dosage: 164 MG
     Route: 042
     Dates: start: 20220616
  5. ETOPOSIDE [Suspect]
     Active Substance: ETOPOSIDE
     Dosage: 350 MG
     Route: 048
     Dates: start: 20220618
  6. ETOPOSIDE [Suspect]
     Active Substance: ETOPOSIDE
     Dosage: UNK
     Route: 065
     Dates: start: 20230207
  7. ETOPOSIDE [Suspect]
     Active Substance: ETOPOSIDE
     Dosage: UNK, 1X/DAY
     Route: 065
     Dates: start: 20230301, end: 20230302
  8. CALCIUM CARBONATE\CHOLECALCIFEROL [Concomitant]
     Active Substance: CALCIUM CARBONATE\CHOLECALCIFEROL
     Dosage: EVERY 3 DAYS
     Route: 065
     Dates: start: 20230207
  9. ALLOPURINOL [Concomitant]
     Active Substance: ALLOPURINOL
     Dosage: ONOGING: YES
     Route: 065
     Dates: start: 20230207
  10. CALCIUM GLUCONATE [Concomitant]
     Active Substance: CALCIUM GLUCONATE
     Route: 042
     Dates: start: 20230228
  11. CIPROFLOXACIN [Concomitant]
     Active Substance: CIPROFLOXACIN
     Dosage: ONGOING: YES
     Route: 065
     Dates: start: 20230207
  12. COCODAMOL [Concomitant]
     Active Substance: ACETAMINOPHEN\CODEINE PHOSPHATE
     Indication: Pain
     Dosage: 30/500MG, AS NEEDED
     Route: 065
  13. CODEINE [Concomitant]
     Active Substance: CODEINE
     Dosage: UNK UNK, AS NEEDED
     Route: 065
     Dates: start: 20230109
  14. DEXAMETHASONE [Concomitant]
     Active Substance: DEXAMETHASONE
  15. DOCUSATE SODIUM [Concomitant]
     Active Substance: DOCUSATE SODIUM
     Dosage: UNK, AS NEEDED
     Route: 065
     Dates: start: 20220614
  16. BUTYLSCOPOLAMINE BROMIDE [Concomitant]
     Active Substance: BUTYLSCOPOLAMINE BROMIDE
     Dosage: UNK UNK, AS NEEDED
     Route: 065
     Dates: start: 20230109
  17. METOCLOPRAMIDE [Concomitant]
     Active Substance: METOCLOPRAMIDE
     Dosage: UNK
     Route: 065
     Dates: start: 20230207
  18. MORPHINE [Concomitant]
     Active Substance: MORPHINE
     Dosage: UNK UNK, AS NEEDED
     Route: 065
     Dates: start: 20230125
  19. ONDANSETRON [Concomitant]
     Active Substance: ONDANSETRON
     Dosage: UNK UNK, AS NEEDED
     Route: 065
     Dates: start: 20230207
  20. ACETAMINOPHEN [Concomitant]
     Active Substance: ACETAMINOPHEN
     Dosage: UNK UNK, AS NEEDED
     Route: 065
     Dates: start: 20230109
  21. SODIUM PHOSPHATE, MONOBASIC, ANHYDROUS [Concomitant]
     Active Substance: SODIUM PHOSPHATE, MONOBASIC, ANHYDROUS
     Dosage: UNK UNK, 3X/DAY
     Route: 065
     Dates: start: 20230228
  22. POTASSIUM PHOSPHATE, DIBASIC [Concomitant]
     Active Substance: POTASSIUM PHOSPHATE, DIBASIC
     Route: 042
     Dates: start: 20230228, end: 20230228
  23. POTASSIUM PHOSPHATE, MONOBASIC [Concomitant]
     Active Substance: POTASSIUM PHOSPHATE, MONOBASIC
     Route: 042
     Dates: start: 20230228, end: 20230228
  24. PROMETHAZINE [Concomitant]
     Active Substance: PROMETHAZINE HYDROCHLORIDE
     Dosage: UNK UNK, AS NEEDED
     Route: 065
  25. SENNA LEAF [Concomitant]
     Active Substance: SENNA LEAF
     Dosage: UNK UNK, AS NEEDED
     Route: 065
     Dates: start: 20220614

REACTIONS (3)
  - Seizure [Recovered/Resolved]
  - Cerebrovascular accident [Recovered/Resolved]
  - Nausea [Recovered/Resolved]

NARRATIVE: CASE EVENT DATE: 20230120
